FAERS Safety Report 4842556-0 (Version None)
Quarter: 2005Q4

REPORT INFORMATION
  Report Type: 
  Country: None (occurrence: None)
  Receive Date: 20051201
  Receipt Date: 20051118
  Transmission Date: 20060501
  Serious: Yes (Hospitalization)
  Sender: FDA-Public Use
  Company Number: FR-JNJFOC-20051003557

PATIENT
  Sex: Male
  Weight: 78 kg

DRUGS (6)
  1. LEUSTATIN [Suspect]
     Route: 042
  2. SULFAMETHOXAZOLE + TRIMETHOPRIM [Concomitant]
     Route: 065
  3. SULFAMETHOXAZOLE + TRIMETHOPRIM [Concomitant]
     Indication: DRUG USE FOR UNKNOWN INDICATION
     Dosage: DOSE NOT REPORTED
     Route: 065
  4. PRIMPERAN INJ [Concomitant]
  5. ZELITREX [Concomitant]
  6. G-CSF [Concomitant]

REACTIONS (3)
  - BONE MARROW FAILURE [None]
  - BRONCHOPULMONARY ASPERGILLOSIS [None]
  - SIGMOIDITIS [None]
